FAERS Safety Report 6124550-5 (Version None)
Quarter: 2009Q1

REPORT INFORMATION
  Report Type: 
  Country: None (occurrence: None)
  Receive Date: 20090319
  Receipt Date: 20090313
  Transmission Date: 20090719
  Serious: No
  Sender: FDA-Public Use
  Company Number: CA-MERCK-0902CAN00077

PATIENT
  Age: 8 Year
  Sex: Male
  Weight: 32 kg

DRUGS (3)
  1. SINGULAIR [Suspect]
     Indication: SEASONAL ALLERGY
     Route: 048
     Dates: start: 20060101, end: 20080201
  2. BUDESONIDE [Concomitant]
     Indication: SEASONAL ALLERGY
     Route: 065
  3. ALBUTEROL [Concomitant]
     Route: 065

REACTIONS (3)
  - ABNORMAL BEHAVIOUR [None]
  - AGGRESSION [None]
  - FEELINGS OF WORTHLESSNESS [None]
